FAERS Safety Report 4596055-4 (Version None)
Quarter: 2005Q1

REPORT INFORMATION
  Report Type: 
  Country: None (occurrence: None)
  Receive Date: 20050225
  Receipt Date: 20050214
  Transmission Date: 20050727
  Serious: Yes (Hospitalization)
  Sender: FDA-Public Use
  Company Number: 2005GB00322

PATIENT

DRUGS (3)
  1. CRESTOR [Suspect]
  2. IBUPROFEN [Concomitant]
  3. ERYTHROMYCIN [Concomitant]

REACTIONS (2)
  - HAEMATEMESIS [None]
  - RASH [None]
